FAERS Safety Report 5922659-X (Version None)
Quarter: 2008Q4

REPORT INFORMATION
  Report Type: 
  Country: None (occurrence: None)
  Receive Date: 20081014
  Receipt Date: 20081006
  Transmission Date: 20090506
  Serious: Yes (Hospitalization)
  Sender: FDA-Public Use
  Company Number: 034930

PATIENT
  Age: 58 Year
  Sex: Male

DRUGS (5)
  1. ADDERALL 10 [Suspect]
     Indication: ATTENTION DEFICIT/HYPERACTIVITY DISORDER
     Dosage: UNK, UNK, UNK
  2. LUNESTA [Suspect]
     Indication: INSOMNIA
     Dosage: 3 MG, PRN, ORAL, 6MG, UNK, ORAL, 3 MG, PRN, ORAL
     Route: 048
     Dates: start: 20050101, end: 20080101
  3. LUNESTA [Suspect]
     Indication: INSOMNIA
     Dosage: 3 MG, PRN, ORAL, 6MG, UNK, ORAL, 3 MG, PRN, ORAL
     Route: 048
     Dates: start: 20080101
  4. AMBIEN [Suspect]
     Dosage: UNK, PRN, UNK
  5. FEXOFENADINE (FEXOFENADINE HYDROCHLORIDE) TABLET [Concomitant]

REACTIONS (4)
  - DRUG INEFFECTIVE [None]
  - INSOMNIA [None]
  - THROMBOSIS [None]
  - TONGUE ULCERATION [None]
